FAERS Safety Report 9313624 (Version 1)
Quarter: 2013Q2

REPORT INFORMATION
  Report Type: Spontaneous
  Country: BR (occurrence: BR)
  Receive Date: 20130528
  Receipt Date: 20130528
  Transmission Date: 20140414
  Serious: Yes (Other)
  Sender: FDA-Public Use
  Company Number: BR-ABBOTT-13X-020-1093091-00

PATIENT
  Age: 22 Year
  Sex: Male

DRUGS (23)
  1. DEPAKOTE ER [Suspect]
     Indication: BIPOLAR DISORDER
     Dosage: 1 TABLET AT NIGHT
  2. DEPAKOTE ER [Suspect]
     Indication: HYPOMANIA
  3. ARIPIPRAZOLE [Suspect]
     Indication: BIPOLAR DISORDER
     Dosage: 1 TABLET AND HALF AT NIGHT
     Dates: end: 20120518
  4. ARIPIPRAZOLE [Suspect]
     Indication: HYPOMANIA
  5. ARIPIPRAZOLE [Suspect]
     Indication: ILL-DEFINED DISORDER
  6. SEROQUEL XR [Suspect]
     Indication: BIPOLAR DISORDER
     Dosage: DAY 1
     Route: 048
  7. SEROQUEL XR [Suspect]
     Indication: HYPOMANIA
     Dosage: DAY 2
  8. SEROQUEL XR [Suspect]
     Dosage: DAY 3
  9. SEROQUEL XR [Suspect]
     Dosage: DAY 4
  10. SEROQUEL XR [Suspect]
     Dates: start: 20120518
  11. SEROQUEL XR [Suspect]
  12. SEROQUEL XR [Suspect]
  13. LITHIUM CARBONATE [Concomitant]
     Indication: BIPOLAR DISORDER
     Dosage: AT NIGHT
  14. LITHIUM CARBONATE [Concomitant]
     Indication: HYPOMANIA
     Dosage: AT NIGHT
  15. BIPERIDEN [Concomitant]
     Indication: BIPOLAR DISORDER
  16. BIPERIDEN [Concomitant]
     Indication: HYPOMANIA
  17. OXCARBAZEPINE [Concomitant]
     Indication: BIPOLAR DISORDER
     Dosage: AT NIGHT
     Dates: end: 20120817
  18. OXCARBAZEPINE [Concomitant]
     Indication: HYPOMANIA
  19. CLONAZEPAN [Concomitant]
     Indication: BIPOLAR DISORDER
     Dosage: AT NIGHT
  20. CLONAZEPAN [Concomitant]
     Indication: HYPOMANIA
  21. OLANZAPINE [Concomitant]
     Indication: BIPOLAR DISORDER
     Dosage: AT NIGHT
  22. OLANZAPINE [Concomitant]
     Indication: HYPOMANIA
  23. OLANZAPINE [Concomitant]

REACTIONS (28)
  - Road traffic accident [Recovered/Resolved]
  - Suicidal ideation [Recovered/Resolved]
  - Mental disorder [Recovered/Resolved]
  - Depressed mood [Recovered/Resolved]
  - Impaired reasoning [Recovered/Resolved]
  - Disturbance in attention [Recovered/Resolved]
  - Asthenia [Recovered/Resolved]
  - Anxiety [Recovered/Resolved]
  - Tachyphrenia [Recovered/Resolved]
  - Somnolence [Recovered/Resolved]
  - Irritability [Recovered/Resolved]
  - Aggression [Recovered/Resolved]
  - Excessive masturbation [Recovered/Resolved]
  - Insomnia [Recovered/Resolved]
  - Depressed mood [Recovered/Resolved]
  - Tachyphrenia [Recovered/Resolved]
  - Thinking abnormal [Recovered/Resolved]
  - Sluggishness [Recovered/Resolved]
  - Crying [Recovered/Resolved]
  - Restlessness [Recovered/Resolved]
  - General physical health deterioration [Recovered/Resolved]
  - Negativism [Recovered/Resolved]
  - Circadian rhythm sleep disorder [Recovered/Resolved]
  - Mental disorder [Recovered/Resolved]
  - Indifference [Recovered/Resolved]
  - Muscle rigidity [Recovered/Resolved]
  - Cyclothymic disorder [Recovered/Resolved]
  - Tachyphrenia [Recovered/Resolved]
